FAERS Safety Report 5100099-3 (Version None)
Quarter: 2006Q3

REPORT INFORMATION
  Report Type: 
  Country: None (occurrence: None)
  Receive Date: 20060908
  Receipt Date: 20060725
  Transmission Date: 20061208
  Serious: Yes (Other)
  Sender: FDA-Public Use
  Company Number: JP-BOEHRINGER INGELHEIM PHARMACEUTICALS, INC.-2006-BP-08681YA

PATIENT
  Sex: Male
  Weight: 61.4 kg

DRUGS (6)
  1. HARNAL (TAMSULOSIN) ORODISPERSABLE CR [Suspect]
     Indication: BENIGN PROSTATIC HYPERPLASIA
     Route: 048
     Dates: start: 20060323, end: 20060713
  2. MICARDIS [Concomitant]
     Route: 065
  3. DORNER [Concomitant]
     Route: 065
  4. BLADDERON [Concomitant]
     Route: 048
     Dates: start: 20060323, end: 20060713
  5. PLETAL [Concomitant]
     Route: 048
  6. TANATRIL [Concomitant]
     Route: 048

REACTIONS (2)
  - DRUG ERUPTION [None]
  - HYPERSENSITIVITY [None]
